FAERS Safety Report 14740911 (Version 5)
Quarter: 2019Q3

REPORT INFORMATION
  Report Type: Spontaneous
  Country: US (occurrence: US)
  Receive Date: 20180410
  Receipt Date: 20190822
  Transmission Date: 20191004
  Serious: Yes (Other)
  Sender: FDA-Public Use
  Company Number: US-GLAXOSMITHKLINE-US2018GSK059965

PATIENT
  Sex: Female
  Weight: 95 kg

DRUGS (5)
  1. OMEPRAZOLE. [Suspect]
     Active Substance: OMEPRAZOLE
     Indication: GASTROOESOPHAGEAL REFLUX DISEASE
     Dosage: 20 MG, QD
     Route: 048
  2. PREVACID [Suspect]
     Active Substance: LANSOPRAZOLE
     Indication: PRODUCT USED FOR UNKNOWN INDICATION
     Dosage: UNK
     Route: 065
  3. PREVACID [Suspect]
     Active Substance: LANSOPRAZOLE
     Indication: PRODUCT USED FOR UNKNOWN INDICATION
     Dosage: 30 MG, QD
     Route: 048
  4. ESOMEPRAZOLE. [Suspect]
     Active Substance: ESOMEPRAZOLE MAGNESIUM
     Indication: GASTROOESOPHAGEAL REFLUX DISEASE
     Dosage: 40 MG, QD
     Route: 048
  5. PANTOPRAZOLE [Suspect]
     Active Substance: PANTOPRAZOLE
     Indication: GASTROOESOPHAGEAL REFLUX DISEASE
     Dosage: 40 MG, QD
     Route: 048

REACTIONS (21)
  - Kidney infection [Unknown]
  - Diabetic nephropathy [Unknown]
  - Diabetic end stage renal disease [Unknown]
  - Dialysis [Unknown]
  - Nephrolithiasis [Unknown]
  - Kidney fibrosis [Unknown]
  - Renal atrophy [Unknown]
  - Intercapillary glomerulosclerosis [Unknown]
  - Proteinuria [Unknown]
  - Device dependence [Unknown]
  - Chest pain [Unknown]
  - Acute kidney injury [Unknown]
  - Renal failure [Unknown]
  - Chronic kidney disease [Unknown]
  - Nephropathy [Unknown]
  - End stage renal disease [Unknown]
  - Pyelonephritis fungal [Unknown]
  - Haemodialysis [Unknown]
  - Nephrotic syndrome [Unknown]
  - Haematuria [Unknown]
  - Nephrogenic anaemia [Unknown]
